FAERS Safety Report 4656803-1 (Version None)
Quarter: 2005Q2

REPORT INFORMATION
  Report Type: 
  Country: None (occurrence: None)
  Receive Date: 20050506
  Receipt Date: 20050418
  Transmission Date: 20051028
  Serious: Yes (Hospitalization)
  Sender: FDA-Public Use
  Company Number: 2005UW06039

PATIENT
  Age: 50 Year
  Sex: Female

DRUGS (2)
  1. CRESTOR [Suspect]
     Dosage: 10 MG PO
  2. ANTIHYPERTENSIVES [Concomitant]

REACTIONS (1)
  - COSTOCHONDRITIS [None]
